FAERS Safety Report 4849479-1 (Version None)
Quarter: 2005Q4

REPORT INFORMATION
  Report Type: 
  Country: None (occurrence: None)
  Receive Date: 20051207
  Receipt Date: 20051124
  Transmission Date: 20060501
  Serious: Yes (Other)
  Sender: FDA-Public Use
  Company Number: 2005161362

PATIENT
  Age: 8 Year
  Sex: Male

DRUGS (4)
  1. SOLU-MEDROL [Suspect]
     Indication: JUVENILE ARTHRITIS
     Dosage: INTRAVENOUS
     Route: 042
     Dates: start: 20040306
  2. PREDNISONE [Suspect]
     Indication: JUVENILE ARTHRITIS
     Dosage: 10 MG
     Dates: start: 20040306, end: 20050601
  3. CYCLOSPORINE [Suspect]
     Indication: JUVENILE ARTHRITIS
     Dosage: 150 MG
     Dates: start: 20040306
  4. METHOTREXATE [Concomitant]

REACTIONS (6)
  - ANAPHYLACTIC SHOCK [None]
  - CONDITION AGGRAVATED [None]
  - HYPERTENSION [None]
  - HYPERTHERMIA [None]
  - JUVENILE ARTHRITIS [None]
  - REVERSIBLE POSTERIOR LEUKOENCEPHALOPATHY SYNDROME [None]
